FAERS Safety Report 17826930 (Version 1)
Quarter: 2020Q2

REPORT INFORMATION
  Report Type: Report from Study
  Country: None (occurrence: CA)
  Receive Date: 20200526
  Receipt Date: 20200526
  Transmission Date: 20200714
  Serious: Yes (Hospitalization)
  Sender: FDA-Public Use
  Company Number: CA-ABBVIE-20K-028-3418533-00

PATIENT
  Age: 24 Year
  Sex: Male

DRUGS (1)
  1. HUMIRA [Suspect]
     Active Substance: ADALIMUMAB
     Indication: CROHN^S DISEASE
     Route: 058
     Dates: start: 20160607

REACTIONS (8)
  - Dizziness [Unknown]
  - White blood cell count decreased [Unknown]
  - Infection [Unknown]
  - Fatigue [Unknown]
  - Inflammation [Unknown]
  - Blood iron decreased [Unknown]
  - Pyrexia [Unknown]
  - Viral infection [Unknown]

NARRATIVE: CASE EVENT DATE: 202005
